FAERS Safety Report 18664945 (Version 1)
Quarter: 2020Q4

REPORT INFORMATION
  Report Type: Other
  Country: US (occurrence: CA)
  Receive Date: 20201225
  Receipt Date: 20201225
  Transmission Date: 20210114
  Serious: Yes (Life-Threatening, Hospitalization, Other)
  Sender: FDA-Public Use
  Company Number: CA-BRECKENRIDGE PHARMACEUTICAL, INC.-2103484

PATIENT
  Age: 52 Year
  Sex: Female

DRUGS (4)
  1. BUDESONIDE AND FORMOTEROL FUMARATE DIHYDRATE [Concomitant]
     Active Substance: BUDESONIDE\FORMOTEROL FUMARATE
  2. SALBUTAMOL [Concomitant]
     Active Substance: ALBUTEROL
  3. DULOXETINE. [Suspect]
     Active Substance: DULOXETINE
     Indication: BACK PAIN
     Route: 048
  4. XYLOMETAZOLINE [Suspect]
     Active Substance: XYLOMETAZOLINE

REACTIONS (3)
  - Thunderclap headache [None]
  - Reversible cerebral vasoconstriction syndrome [None]
  - Subarachnoid haemorrhage [None]
